FAERS Safety Report 12171270 (Version 3)
Quarter: 2016Q2

REPORT INFORMATION
  Report Type: Spontaneous
  Country: US (occurrence: US)
  Receive Date: 20160311
  Receipt Date: 20160609
  Transmission Date: 20160815
  Serious: No
  Sender: FDA-Public Use
  Company Number: US-PFIZER INC-2016095015

PATIENT
  Age: 55 Year
  Sex: Female
  Weight: 77 kg

DRUGS (13)
  1. GEODON [Suspect]
     Active Substance: ZIPRASIDONE HYDROCHLORIDE\ZIPRASIDONE MESYLATE
     Indication: ANXIETY
     Dosage: 40 MG, 2X/DAY
     Dates: end: 20150819
  2. GEODON [Suspect]
     Active Substance: ZIPRASIDONE HYDROCHLORIDE\ZIPRASIDONE MESYLATE
     Indication: PSYCHOTIC DISORDER
     Dosage: 40 MG, 2X/DAY
     Dates: end: 20150912
  3. BUSPIRONE [Concomitant]
     Active Substance: BUSPIRONE HYDROCHLORIDE
     Indication: ANXIETY
     Dosage: 10 MG, 2X/DAY
     Dates: start: 2005
  4. GEODON [Suspect]
     Active Substance: ZIPRASIDONE HYDROCHLORIDE\ZIPRASIDONE MESYLATE
     Indication: MOOD SWINGS
     Dosage: 40 MG, 1X/DAY
     Dates: end: 20150903
  5. SERTRALINE [Concomitant]
     Active Substance: SERTRALINE HYDROCHLORIDE
     Dosage: UNK
     Dates: start: 2013
  6. GEODON [Suspect]
     Active Substance: ZIPRASIDONE HYDROCHLORIDE\ZIPRASIDONE MESYLATE
     Indication: HALLUCINATIONS, MIXED
     Dosage: 160 MG, 1X/DAY
     Dates: start: 2002, end: 2004
  7. GEODON [Suspect]
     Active Substance: ZIPRASIDONE HYDROCHLORIDE\ZIPRASIDONE MESYLATE
     Dosage: 60 MG, UNK
     Dates: start: 2010, end: 201509
  8. TRAZODONE [Concomitant]
     Active Substance: TRAZODONE HYDROCHLORIDE
     Dosage: UNK
     Dates: start: 2000, end: 2012
  9. BUSPIRONE [Concomitant]
     Active Substance: BUSPIRONE HYDROCHLORIDE
     Dosage: UNK(ON AND OFF SINCE 2000)
     Dates: start: 2000
  10. GEODON [Suspect]
     Active Substance: ZIPRASIDONE HYDROCHLORIDE\ZIPRASIDONE MESYLATE
     Indication: DEPRESSION
     Dosage: 20 MG, 1X/DAY
     Dates: start: 20150903, end: 20150912
  11. GEODON [Suspect]
     Active Substance: ZIPRASIDONE HYDROCHLORIDE\ZIPRASIDONE MESYLATE
     Indication: PARANOIA
     Dosage: 50 MG, 1X/DAY (DISCONTINUATION OF 6-8MON IN 2008-2008)
     Dates: start: 2000, end: 2009
  12. GEODON [Suspect]
     Active Substance: ZIPRASIDONE HYDROCHLORIDE\ZIPRASIDONE MESYLATE
     Dosage: 40 MG, UNK
     Dates: start: 2010, end: 201509
  13. TRAZODONE [Concomitant]
     Active Substance: TRAZODONE HYDROCHLORIDE
     Dosage: UNK
     Dates: start: 201512

REACTIONS (16)
  - Tardive dyskinesia [Not Recovered/Not Resolved]
  - Malaise [Recovered/Resolved]
  - Fatigue [Recovered/Resolved]
  - Feeling abnormal [Recovered/Resolved]
  - Drug withdrawal syndrome [Unknown]
  - Headache [Recovered/Resolved]
  - Influenza like illness [Recovered/Resolved]
  - Pain [Recovered/Resolved]
  - Dystonia [Not Recovered/Not Resolved]
  - Depression [Unknown]
  - Dry throat [Not Recovered/Not Resolved]
  - Insomnia [Recovering/Resolving]
  - Weight increased [Recovered/Resolved]
  - Nausea [Recovered/Resolved]
  - Frequent bowel movements [Recovered/Resolved]
  - Nervous system disorder [Unknown]

NARRATIVE: CASE EVENT DATE: 201503
